FAERS Safety Report 24586900 (Version 1)
Quarter: 2024Q4

REPORT INFORMATION
  Report Type: Spontaneous
  Country: US (occurrence: US)
  Receive Date: 20241107
  Receipt Date: 20241107
  Transmission Date: 20250114
  Serious: Yes (Hospitalization, Other)
  Sender: ALEXION PHARMACEUTICALS
  Company Number: US-AstraZeneca-CH-00726022A

PATIENT

DRUGS (1)
  1. CALQUENCE [Suspect]
     Active Substance: ACALABRUTINIB
     Indication: Chronic lymphocytic leukaemia

REACTIONS (5)
  - Myocardial infarction [Unknown]
  - Arrhythmia [Unknown]
  - Blood cholesterol [Unknown]
  - Atrioventricular block [Unknown]
  - Therapeutic product effect increased [Unknown]
